FAERS Safety Report 17657117 (Version 1)
Quarter: 2020Q2

REPORT INFORMATION
  Report Type: Report from Study
  Country: US (occurrence: US)
  Receive Date: 20200410
  Receipt Date: 20200410
  Transmission Date: 20200713
  Serious: Yes (Other)
  Sender: FDA-Public Use
  Company Number: NVSC2020US096680

PATIENT
  Age: 6 Year
  Sex: Female
  Weight: 15.87 kg

DRUGS (3)
  1. ILARIS [Suspect]
     Active Substance: CANAKINUMAB
     Dosage: 150 UNK, Q4W
     Route: 065
     Dates: start: 202001
  2. TACROLIMUS. [Concomitant]
     Active Substance: TACROLIMUS
     Indication: PRODUCT USED FOR UNKNOWN INDICATION
     Dosage: UNK
     Route: 065
  3. ILARIS [Suspect]
     Active Substance: CANAKINUMAB
     Indication: JUVENILE IDIOPATHIC ARTHRITIS
     Dosage: 150 MG, Q3W
     Route: 065
     Dates: start: 20190319, end: 202001

REACTIONS (4)
  - Lethargy [Recovered/Resolved]
  - Inflammatory marker increased [Recovered/Resolved]
  - Juvenile idiopathic arthritis [Recovered/Resolved]
  - Rash [Recovered/Resolved]

NARRATIVE: CASE EVENT DATE: 202001
